FAERS Safety Report 21812887 (Version 4)
Quarter: 2023Q4

REPORT INFORMATION
  Report Type: Report from Study
  Country: AU (occurrence: AU)
  Receive Date: 20230103
  Receipt Date: 20231025
  Transmission Date: 20240110
  Serious: Yes (Other)
  Sender: FDA-Public Use
  Company Number: AU-BAYER-2022A176053

PATIENT
  Age: 65 Year
  Sex: Male

DRUGS (1)
  1. LAROTRECTINIB [Suspect]
     Active Substance: LAROTRECTINIB
     Indication: Astrocytoma malignant
     Dosage: 100 MG
     Dates: start: 20221103

REACTIONS (1)
  - Astrocytoma malignant [Not Recovered/Not Resolved]
